FAERS Safety Report 14346593 (Version 2)
Quarter: 2018Q1

REPORT INFORMATION
  Report Type: Spontaneous
  Country: RU (occurrence: RU)
  Receive Date: 20180103
  Receipt Date: 20180121
  Transmission Date: 20180509
  Serious: Yes (Other)
  Sender: FDA-Public Use
  Company Number: PHHY2017RU197106

PATIENT
  Sex: Male

DRUGS (1)
  1. AMOKSIKLAV [Suspect]
     Active Substance: AMOXICILLIN\CLAVULANATE POTASSIUM
     Indication: PERIOSTITIS
     Dosage: 1 DF, TID
     Route: 048
     Dates: start: 201712

REACTIONS (3)
  - Hypersensitivity [Recovered/Resolved]
  - Ear discomfort [Recovered/Resolved]
  - Ototoxicity [Recovered/Resolved]

NARRATIVE: CASE EVENT DATE: 20171212
